FAERS Safety Report 9893999 (Version 2)
Quarter: 2014Q1

REPORT INFORMATION
  Report Type: Spontaneous
  Country: US (occurrence: US)
  Receive Date: 20140213
  Receipt Date: 20140213
  Transmission Date: 20141002
  Serious: No
  Sender: FDA-Public Use
  Company Number: US-PFIZER INC-2013089037

PATIENT
  Age: 55 Year
  Sex: Female
  Weight: 56.69 kg

DRUGS (1)
  1. LYRICA [Suspect]
     Indication: NEURALGIA
     Dosage: 2.5 MG, 1X/DAY
     Route: 048
     Dates: start: 201303

REACTIONS (4)
  - Intentional drug misuse [Unknown]
  - Expired drug administered [Unknown]
  - Mouth ulceration [Unknown]
  - Gastrointestinal disorder [Unknown]
